FAERS Safety Report 7564799-8 (Version None)
Quarter: 2011Q2

REPORT INFORMATION
  Report Type: 
  Country: None (occurrence: None)
  Receive Date: 20110622
  Receipt Date: 20110310
  Transmission Date: 20111010
  Serious: Yes (Death)
  Sender: FDA-Public Use
  Company Number: US-MYLANLABS-2010S1022045

PATIENT
  Age: 84 Year
  Sex: Female

DRUGS (11)
  1. OXYCONTIN [Concomitant]
  2. POTASSIUM [Concomitant]
  3. ASPIRIN [Concomitant]
  4. ATIVAN [Concomitant]
  5. CLOZAPINE [Suspect]
     Indication: MAJOR DEPRESSION
     Route: 048
  6. NEURONTIN [Concomitant]
  7. IMDUR [Concomitant]
  8. AMIODARONE HCL [Concomitant]
  9. PRILOSEC [Concomitant]
  10. CLOZAPINE [Suspect]
     Indication: PSYCHOTIC DISORDER
     Route: 048
  11. PLAVIX [Concomitant]

REACTIONS (1)
  - DEATH [None]
